FAERS Safety Report 21631841 (Version 1)
Quarter: 2022Q4

REPORT INFORMATION
  Report Type: Report from Study
  Country: US (occurrence: US)
  Receive Date: 20221123
  Receipt Date: 20221123
  Transmission Date: 20230113
  Serious: No
  Sender: FDA-Public Use
  Company Number: US-ABBVIE-22K-163-4366389-00

PATIENT
  Age: 54 Year
  Sex: Female

DRUGS (2)
  1. HUMIRA [Suspect]
     Active Substance: ADALIMUMAB
     Indication: Crohn^s disease
     Dosage: DAY 29 STRENGTH 40 MG
     Route: 058
     Dates: start: 20211109
  2. HUMIRA [Suspect]
     Active Substance: ADALIMUMAB
     Route: 058
     Dates: start: 20211012

REACTIONS (25)
  - Crohn^s disease [Unknown]
  - Unevaluable event [Unknown]
  - Unevaluable event [Not Recovered/Not Resolved]
  - Defaecation urgency [Unknown]
  - Respiratory disorder [Not Recovered/Not Resolved]
  - Gastric disorder [Not Recovered/Not Resolved]
  - Hair growth abnormal [Unknown]
  - Eye inflammation [Recovered/Resolved]
  - Eye swelling [Unknown]
  - Insomnia [Not Recovered/Not Resolved]
  - Therapeutic product effect incomplete [Unknown]
  - Anxiety [Not Recovered/Not Resolved]
  - Depressed mood [Unknown]
  - Depression [Not Recovered/Not Resolved]
  - Arthralgia [Not Recovered/Not Resolved]
  - Rash papular [Not Recovered/Not Resolved]
  - Therapeutic response shortened [Not Recovered/Not Resolved]
  - Retching [Not Recovered/Not Resolved]
  - COVID-19 [Recovered/Resolved]
  - Rhinitis [Unknown]
  - Diverticulitis [Unknown]
  - Contusion [Recovered/Resolved]
  - Abdominal distension [Not Recovered/Not Resolved]
  - Overweight [Unknown]
  - Frequent bowel movements [Recovering/Resolving]

NARRATIVE: CASE EVENT DATE: 20211001
